FAERS Safety Report 4497511-X (Version None)
Quarter: 2004Q4

REPORT INFORMATION
  Report Type: 
  Country: None (occurrence: None)
  Receive Date: 20041110
  Receipt Date: 20041101
  Transmission Date: 20050328
  Serious: Yes (Hospitalization)
  Sender: FDA-Public Use
  Company Number: US-ROCHE-385223

PATIENT
  Age: 51 Year
  Sex: Male

DRUGS (13)
  1. CAPECITABINE [Suspect]
     Dosage: THREE WEEKS TREATMENT FOLLOWED BY ONE WEEK REST.
     Route: 048
     Dates: start: 20041012
  2. GEMCITABINE [Suspect]
     Dosage: DOSE EQUATES TO 2510MG.  GIVEN FOR THREE WEEKS OF EACH FOUR WEEK CYCLE.
     Route: 042
     Dates: start: 20041012
  3. COMPAZINE [Concomitant]
     Dosage: P.R.N.
  4. METHADONE [Concomitant]
  5. DILAUDID [Concomitant]
     Dosage: P.R.N.
  6. PROVIGIL [Concomitant]
  7. ZOLOFT [Concomitant]
  8. SEROQUEL [Concomitant]
     Dosage: QHS
  9. CLONAZEPAM ROCHE UNSPEC. [Concomitant]
     Dosage: QHS
  10. XANAX [Concomitant]
     Dosage: QHS
  11. AMBIEN [Concomitant]
     Dosage: QHS
  12. LOPRESSOR [Concomitant]
  13. PREVACID [Concomitant]

REACTIONS (15)
  - ABDOMINAL PAIN [None]
  - DIARRHOEA [None]
  - DYSPNOEA [None]
  - INFECTION [None]
  - MUCOSAL INFLAMMATION [None]
  - NAUSEA [None]
  - PAIN [None]
  - PYREXIA [None]
  - RASH [None]
  - RED BLOOD CELL COUNT DECREASED [None]
  - STOMATITIS [None]
  - SWELLING FACE [None]
  - THROMBOCYTOPENIA [None]
  - VOMITING [None]
  - WHITE BLOOD CELL COUNT DECREASED [None]
